FAERS Safety Report 16944103 (Version 3)
Quarter: 2019Q4

REPORT INFORMATION
  Report Type: Spontaneous
  Country: NL (occurrence: NL)
  Receive Date: 20191022
  Receipt Date: 20191101
  Transmission Date: 20200122
  Serious: Yes (Death)
  Sender: FDA-Public Use
  Company Number: NL-TEVA-2019-NL-1124272

PATIENT
  Age: 61 Year
  Sex: Male
  Weight: 80 kg

DRUGS (2)
  1. OLANZAPINE TABLET, 20 MG (MILLIGRAM)OLANZAPINE MYLAN TABLET FILMOMHULD [Suspect]
     Active Substance: OLANZAPINE
     Indication: AFFECTIVE DISORDER
  2. OLANZAPINE TABLET, 20 MG (MILLIGRAM)OLANZAPINE MYLAN TABLET FILMOMHULD [Suspect]
     Active Substance: OLANZAPINE
     Indication: SCHIZOPHRENIA
     Dosage: 1X DAY 1 TABLET
     Route: 065
     Dates: start: 2019, end: 2019

REACTIONS (7)
  - Restlessness [Unknown]
  - Hallucination [Unknown]
  - Completed suicide [Fatal]
  - Anxiety [Unknown]
  - Feeling abnormal [Unknown]
  - Insomnia [Unknown]
  - Therapeutic response unexpected [Unknown]

NARRATIVE: CASE EVENT DATE: 2019
